FAERS Safety Report 7665036-6 (Version None)
Quarter: 2011Q3

REPORT INFORMATION
  Report Type: 
  Country: None (occurrence: None)
  Receive Date: 20110806
  Receipt Date: 20110215
  Transmission Date: 20111222
  Serious: No
  Sender: FDA-Public Use
  Company Number: US-ABBOTT-11P-163-0705386-00

PATIENT
  Sex: Female
  Weight: 93.07 kg

DRUGS (17)
  1. BYETTA [Concomitant]
     Indication: DIABETES MELLITUS
  2. ASPIRIN [Concomitant]
     Indication: PRODUCT USED FOR UNKNOWN INDICATION
  3. ACCUPRIL [Concomitant]
     Indication: BLOOD PRESSURE
  4. NEXIUM [Concomitant]
     Indication: PRODUCT USED FOR UNKNOWN INDICATION
  5. NIASPAN [Suspect]
     Indication: BLOOD CHOLESTEROL INCREASED
     Dates: start: 20090501
  6. NIASPAN [Suspect]
  7. NOVOLOG [Concomitant]
     Indication: PRODUCT USED FOR UNKNOWN INDICATION
     Dosage: 70/30 UNITS TWICE DAILY
  8. LASIX [Concomitant]
  9. MG [Concomitant]
     Indication: PRODUCT USED FOR UNKNOWN INDICATION
  10. ALLOPURINOL [Concomitant]
     Indication: GOUT
  11. NIASPAN [Suspect]
     Route: 048
  12. LASIX [Concomitant]
     Indication: CARDIAC FAILURE CONGESTIVE
  13. PRADAXA [Concomitant]
     Indication: ANTICOAGULANT THERAPY
  14. DIGOXIN [Concomitant]
     Indication: ATRIAL FIBRILLATION
  15. TIKOSYN [Concomitant]
     Indication: ATRIAL FIBRILLATION
  16. TOPROL-XL [Concomitant]
     Indication: PRODUCT USED FOR UNKNOWN INDICATION
  17. CARDIZEM [Concomitant]
     Indication: CARDIAC DISORDER

REACTIONS (1)
  - PRURITUS [None]
